FAERS Safety Report 24565235 (Version 1)
Quarter: 2024Q4

REPORT INFORMATION
  Report Type: Spontaneous
  Country: KR (occurrence: KR)
  Receive Date: 20241030
  Receipt Date: 20241030
  Transmission Date: 20250115
  Serious: Yes (Hospitalization, Other)
  Sender: BRISTOL-MYERS SQUIBB COMPANY
  Company Number: KR-BRISTOL-MYERS SQUIBB COMPANY-2024-166815

PATIENT
  Age: 44 Year
  Sex: Female
  Weight: 43 kg

DRUGS (84)
  1. BARACLUDE [Suspect]
     Active Substance: ENTECAVIR
     Indication: Product used for unknown indication
     Dates: start: 20110503, end: 20110503
  2. CEFDINIR [Concomitant]
     Active Substance: CEFDINIR
     Indication: Gastroenteritis aerobacter
     Dates: start: 20210427, end: 20210527
  3. CEFDINIR [Concomitant]
     Active Substance: CEFDINIR
     Dates: start: 20210419, end: 20210425
  4. RIFAXIMIN [Concomitant]
     Active Substance: RIFAXIMIN
     Indication: Infection
     Dates: start: 20201124, end: 20201126
  5. CHLORPHENIRAMINE MALEATE [Concomitant]
     Active Substance: CHLORPHENIRAMINE MALEATE
     Dates: start: 20210613, end: 20210614
  6. CALCIUM CARBONATE [Concomitant]
     Active Substance: CALCIUM CARBONATE
     Indication: Vitamin D deficiency
  7. METRONIDAZOLE [Concomitant]
     Active Substance: METRONIDAZOLE
     Indication: Infection
     Dates: start: 20210427, end: 20210527
  8. METRONIDAZOLE [Concomitant]
     Active Substance: METRONIDAZOLE
     Dates: start: 20210614, end: 20210614
  9. METRONIDAZOLE [Concomitant]
     Active Substance: METRONIDAZOLE
     Dates: start: 20210612, end: 20210613
  10. METRONIDAZOLE [Concomitant]
     Active Substance: METRONIDAZOLE
     Dates: start: 20210419, end: 20210425
  11. CHOLECALCIFEROL [Concomitant]
     Active Substance: CHOLECALCIFEROL
     Indication: Vitamin D deficiency
     Dates: start: 20201208, end: 20210305
  12. CHOLESTYRAMINE [Concomitant]
     Active Substance: CHOLESTYRAMINE
     Indication: Diarrhoea
     Dates: start: 20210614, end: 20210621
  13. CHOLESTYRAMINE [Concomitant]
     Active Substance: CHOLESTYRAMINE
     Dates: start: 20210622
  14. CEFOTAXIME SODIUM [Concomitant]
     Active Substance: CEFOTAXIME SODIUM
     Indication: Infection
     Dates: start: 20210614, end: 20210614
  15. CEFOTAXIME SODIUM [Concomitant]
     Active Substance: CEFOTAXIME SODIUM
     Dates: start: 20210613, end: 20210613
  16. METHYLPREDNISOLONE SODIUM SUCCINATE [Concomitant]
     Active Substance: METHYLPREDNISOLONE SODIUM SUCCINATE
     Dates: start: 20101203, end: 20101209
  17. METHYLPREDNISOLONE SODIUM SUCCINATE [Concomitant]
     Active Substance: METHYLPREDNISOLONE SODIUM SUCCINATE
     Dates: start: 20101210, end: 20101216
  18. PREDNISOLONE [Concomitant]
     Active Substance: PREDNISOLONE
     Indication: Crohn^s disease
     Dates: start: 20100916, end: 20100922
  19. PREDNISOLONE [Concomitant]
     Active Substance: PREDNISOLONE
     Indication: Infection
     Dates: start: 20100923, end: 20100929
  20. PREDNISOLONE [Concomitant]
     Active Substance: PREDNISOLONE
     Dates: start: 20101014, end: 20101020
  21. PREDNISOLONE [Concomitant]
     Active Substance: PREDNISOLONE
     Dates: start: 20100909, end: 20100915
  22. PREDNISOLONE [Concomitant]
     Active Substance: PREDNISOLONE
     Dates: start: 20101021, end: 20101027
  23. PREDNISOLONE [Concomitant]
     Active Substance: PREDNISOLONE
     Dates: start: 20101203, end: 20101209
  24. PREDNISOLONE [Concomitant]
     Active Substance: PREDNISOLONE
     Dates: start: 20101210, end: 20101216
  25. PREDNISOLONE [Concomitant]
     Active Substance: PREDNISOLONE
     Dates: start: 20100113, end: 20100119
  26. PREDNISOLONE [Concomitant]
     Active Substance: PREDNISOLONE
     Dates: start: 20101217, end: 20101217
  27. PREDNISOLONE [Concomitant]
     Active Substance: PREDNISOLONE
     Dates: start: 20101231, end: 20110106
  28. PREDNISOLONE [Concomitant]
     Active Substance: PREDNISOLONE
     Dates: start: 20091216, end: 20091222
  29. PREDNISOLONE [Concomitant]
     Active Substance: PREDNISOLONE
     Dates: start: 20201124, end: 20201130
  30. PREDNISOLONE [Concomitant]
     Active Substance: PREDNISOLONE
     Dates: start: 20100930, end: 20101006
  31. PREDNISOLONE [Concomitant]
     Active Substance: PREDNISOLONE
     Dates: start: 20100902, end: 20100908
  32. PREDNISOLONE [Concomitant]
     Active Substance: PREDNISOLONE
     Dates: start: 20091118, end: 20091124
  33. PREDNISOLONE [Concomitant]
     Active Substance: PREDNISOLONE
     Dates: start: 20201201, end: 20201207
  34. PREDNISOLONE [Concomitant]
     Active Substance: PREDNISOLONE
     Dates: start: 20201222, end: 20211204
  35. PREDNISOLONE [Concomitant]
     Active Substance: PREDNISOLONE
     Dates: start: 20210105, end: 20210118
  36. PREDNISOLONE [Concomitant]
     Active Substance: PREDNISOLONE
     Dates: start: 20070719, end: 20070725
  37. PREDNISOLONE [Concomitant]
     Active Substance: PREDNISOLONE
     Dates: start: 20070726, end: 20070801
  38. PREDNISOLONE [Concomitant]
     Active Substance: PREDNISOLONE
     Dates: start: 20070802, end: 20070808
  39. PREDNISOLONE [Concomitant]
     Active Substance: PREDNISOLONE
     Dates: start: 20070809, end: 20070815
  40. PREDNISOLONE [Concomitant]
     Active Substance: PREDNISOLONE
     Dates: start: 20070821, end: 20070827
  41. PREDNISOLONE [Concomitant]
     Active Substance: PREDNISOLONE
     Dates: start: 20201208, end: 20201221
  42. PREDNISOLONE [Concomitant]
     Active Substance: PREDNISOLONE
     Dates: start: 20110222, end: 20110307
  43. PREDNISOLONE [Concomitant]
     Active Substance: PREDNISOLONE
     Dates: start: 20110207, end: 20110221
  44. PREDNISOLONE [Concomitant]
     Active Substance: PREDNISOLONE
     Dates: start: 20070904, end: 20070917
  45. PREDNISOLONE [Concomitant]
     Active Substance: PREDNISOLONE
     Dates: start: 20080619, end: 20080813
  46. PREDNISOLONE [Concomitant]
     Active Substance: PREDNISOLONE
     Dates: start: 20091111, end: 20091117
  47. PREDNISOLONE [Concomitant]
     Active Substance: PREDNISOLONE
     Dates: start: 20070828, end: 20070903
  48. PREDNISOLONE [Concomitant]
     Active Substance: PREDNISOLONE
     Dates: start: 20110121, end: 20110206
  49. PREDNISOLONE [Concomitant]
     Active Substance: PREDNISOLONE
     Dates: start: 20110107, end: 20110121
  50. PREDNISOLONE [Concomitant]
     Active Substance: PREDNISOLONE
     Dates: start: 20101217, end: 20101230
  51. PREDNISOLONE [Concomitant]
     Active Substance: PREDNISOLONE
     Dates: start: 20100826, end: 20100901
  52. PREDNISOLONE [Concomitant]
     Active Substance: PREDNISOLONE
     Dates: start: 20091209, end: 20091215
  53. PREDNISOLONE [Concomitant]
     Active Substance: PREDNISOLONE
     Dates: start: 20100819, end: 20100825
  54. PREDNISOLONE [Concomitant]
     Active Substance: PREDNISOLONE
     Dates: start: 20101028, end: 20101103
  55. PREDNISOLONE [Concomitant]
     Active Substance: PREDNISOLONE
     Dates: start: 20101007, end: 20101013
  56. PREDNISOLONE [Concomitant]
     Active Substance: PREDNISOLONE
     Dates: start: 20100120, end: 20100203
  57. PREDNISOLONE [Concomitant]
     Active Substance: PREDNISOLONE
     Dates: start: 20091230, end: 20100105
  58. PREDNISOLONE [Concomitant]
     Active Substance: PREDNISOLONE
     Dates: start: 20100106, end: 20100112
  59. PREDNISOLONE [Concomitant]
     Active Substance: PREDNISOLONE
     Dates: start: 20091223, end: 20091229
  60. PREDNISOLONE [Concomitant]
     Active Substance: PREDNISOLONE
     Dates: start: 20091202, end: 20091208
  61. PREDNISOLONE [Concomitant]
     Active Substance: PREDNISOLONE
     Dates: start: 20091125, end: 20091201
  62. PROPACETAMOL HYDROCHLORIDE [Concomitant]
     Active Substance: PROPACETAMOL HYDROCHLORIDE
     Indication: Abdominal pain
     Dates: start: 20210613, end: 20210614
  63. TIROPRAMIDE HYDROCHLORIDE [Concomitant]
     Active Substance: TIROPRAMIDE HYDROCHLORIDE
     Indication: Infection
     Dates: start: 20210601
  64. TIROPRAMIDE HYDROCHLORIDE [Concomitant]
     Active Substance: TIROPRAMIDE HYDROCHLORIDE
     Dates: start: 20210309, end: 20210408
  65. TRIMEBUTINE [Concomitant]
     Active Substance: TRIMEBUTINE
     Indication: Diarrhoea
     Dates: start: 20210309, end: 20210408
  66. TRIMEBUTINE [Concomitant]
     Active Substance: TRIMEBUTINE
     Dates: start: 20210601
  67. AZATHIOPRINE [Concomitant]
     Active Substance: AZATHIOPRINE
     Indication: Crohn^s disease
     Dates: start: 20110322, end: 20110404
  68. AZATHIOPRINE [Concomitant]
     Active Substance: AZATHIOPRINE
     Dates: start: 20111014, end: 20111222
  69. AZATHIOPRINE [Concomitant]
     Active Substance: AZATHIOPRINE
     Dates: start: 20110826, end: 20111012
  70. AZATHIOPRINE [Concomitant]
     Active Substance: AZATHIOPRINE
     Dates: start: 20111223, end: 20120311
  71. AZATHIOPRINE [Concomitant]
     Active Substance: AZATHIOPRINE
     Dates: start: 20110406, end: 20120501
  72. AZATHIOPRINE [Concomitant]
     Active Substance: AZATHIOPRINE
     Dates: start: 20110827, end: 20121013
  73. AZATHIOPRINE [Concomitant]
     Active Substance: AZATHIOPRINE
     Dates: start: 20110503, end: 20110721
  74. AZATHIOPRINE [Concomitant]
     Active Substance: AZATHIOPRINE
     Dates: start: 20101231, end: 20110221
  75. AZATHIOPRINE [Concomitant]
     Active Substance: AZATHIOPRINE
     Dates: start: 20110722, end: 20110825
  76. AZATHIOPRINE [Concomitant]
     Active Substance: AZATHIOPRINE
     Dates: start: 20110405, end: 20110502
  77. AZATHIOPRINE [Concomitant]
     Active Substance: AZATHIOPRINE
     Dates: start: 20120312, end: 20210104
  78. AZATHIOPRINE [Concomitant]
     Active Substance: AZATHIOPRINE
     Dates: start: 20110222, end: 20110321
  79. PANTOPRAZOLE SODIUM [Concomitant]
     Active Substance: PANTOPRAZOLE SODIUM
     Indication: Gastric ulcer
     Dates: start: 20201124, end: 20210401
  80. MESALAMINE [Concomitant]
     Active Substance: MESALAMINE
  81. MESALAMINE [Concomitant]
     Active Substance: MESALAMINE
     Dates: start: 20110722, end: 20111031
  82. MESALAMINE [Concomitant]
     Active Substance: MESALAMINE
     Dates: start: 20070821, end: 20101130
  83. MESALAMINE [Concomitant]
     Active Substance: MESALAMINE
     Dates: start: 20070719, end: 20070815
  84. BACILLUS SUBTILIS;ENTEROCOCCUS FAECIUM [Concomitant]
     Dates: start: 20210309, end: 20210408

REACTIONS (1)
  - Crohn^s disease [Recovered/Resolved]

NARRATIVE: CASE EVENT DATE: 20210612
